FAERS Safety Report 12036833 (Version 2)
Quarter: 2016Q1

REPORT INFORMATION
  Report Type: Report from Study
  Country: US (occurrence: US)
  Receive Date: 20160208
  Receipt Date: 20160309
  Transmission Date: 20160526
  Serious: No
  Sender: FDA-Public Use
  Company Number: US-AMGEN-USASL2016011320

PATIENT
  Age: 59 Year
  Sex: Female

DRUGS (1)
  1. ENBREL [Suspect]
     Active Substance: ETANERCEPT
     Indication: RHEUMATOID ARTHRITIS
     Dosage: UNK UNK, QWK
     Route: 065

REACTIONS (12)
  - Ear disorder [Unknown]
  - Tinnitus [Unknown]
  - Injection site swelling [Unknown]
  - Pain of skin [Not Recovered/Not Resolved]
  - Skin swelling [Unknown]
  - Pruritus [Unknown]
  - Ear pain [Unknown]
  - Pain [Not Recovered/Not Resolved]
  - Injection site erythema [Unknown]
  - Injection site reaction [Unknown]
  - Neck pain [Unknown]
  - Erythema [Unknown]
